FAERS Safety Report 7988527-7 (Version None)
Quarter: 2011Q4

REPORT INFORMATION
  Report Type: 
  Country: None (occurrence: None)
  Receive Date: 20111218
  Receipt Date: 20111213
  Transmission Date: 20120403
  Serious: Yes (Other)
  Sender: FDA-Public Use
  Company Number: US-VERTEX PHARMACEUTICALS INC.-AE-2011-004957

PATIENT
  Sex: Female

DRUGS (3)
  1. PEGASYS [Concomitant]
     Indication: HEPATITIS C
     Route: 058
     Dates: start: 20111012
  2. INCIVEK [Suspect]
     Indication: HEPATITIS C
     Route: 048
     Dates: start: 20111012, end: 20111209
  3. RIBAVIRIN [Concomitant]
     Indication: HEPATITIS C
     Route: 048
     Dates: start: 20111012

REACTIONS (13)
  - OEDEMA PERIPHERAL [None]
  - HORDEOLUM [None]
  - OEDEMA MOUTH [None]
  - WHITE BLOOD CELL COUNT DECREASED [None]
  - RASH [None]
  - ANAEMIA [None]
  - HAEMORRHAGE [None]
  - COUGH [None]
  - HAEMORRHOIDS [None]
  - AURICULAR SWELLING [None]
  - EYE DISCHARGE [None]
  - PRESYNCOPE [None]
  - IRRITABILITY [None]
